FAERS Safety Report 8171191-4 (Version None)
Quarter: 2012Q1

REPORT INFORMATION
  Report Type: 
  Country: None (occurrence: None)
  Receive Date: 20120228
  Receipt Date: 20111229
  Transmission Date: 20120608
  Serious: Yes (Hospitalization)
  Sender: FDA-Public Use
  Company Number: US-BRISTOL-MYERS SQUIBB COMPANY-16294167

PATIENT
  Age: 77 Year
  Sex: Male

DRUGS (8)
  1. ONGLYZA [Suspect]
     Indication: DIABETES MELLITUS
     Dates: start: 20110209, end: 20110101
  2. ACETAMINOPHEN [Concomitant]
  3. LEXAPRO [Concomitant]
  4. TRICOR [Concomitant]
  5. SYNTHROID [Concomitant]
  6. HUMALOG [Concomitant]
     Dosage: 1DF=10 UNITS
  7. VITAMIN D [Concomitant]
     Dosage: 1DF=1000 UNITS
  8. PLAVIX [Concomitant]

REACTIONS (1)
  - PANCREATITIS [None]
